FAERS Safety Report 8156774-X (Version None)
Quarter: 2012Q1

REPORT INFORMATION
  Report Type: 
  Country: None (occurrence: None)
  Receive Date: 20120213
  Receipt Date: 20120207
  Transmission Date: 20120608
  Serious: Yes (Hospitalization)
  Sender: FDA-Public Use
  Company Number: 2012031049

PATIENT
  Age: 66 Year
  Sex: Male
  Weight: 122.4712 kg

DRUGS (14)
  1. ONDANSETRON HCL (ONDANSETRON) [Concomitant]
  2. HIZENTRA [Suspect]
  3. HIZENTRA [Suspect]
  4. SPIRONOLACTONE [Concomitant]
  5. LACTULOSE [Concomitant]
  6. MULTIVITAMIN [Concomitant]
  7. METOCLOPRAMIDE [Concomitant]
  8. LORTAB [Concomitant]
  9. XIFAXAN (RIFAXIMIN) [Concomitant]
  10. HIZENTRA [Suspect]
     Indication: IMMUNODEFICIENCY
     Dosage: SEE IMAGE
     Route: 058
     Dates: start: 20120122
  11. HIZENTRA [Suspect]
     Indication: IMMUNODEFICIENCY
     Dosage: SEE IMAGE
     Route: 058
     Dates: start: 20111020
  12. MIRAPEX [Concomitant]
  13. FUROSEMIDE [Concomitant]
  14. OMEPRAZOLE [Concomitant]

REACTIONS (2)
  - INFLUENZA LIKE ILLNESS [None]
  - HAEMOGLOBIN DECREASED [None]
